FAERS Safety Report 8052812-3 (Version None)
Quarter: 2012Q1

REPORT INFORMATION
  Report Type: 
  Country: None (occurrence: None)
  Receive Date: 20120118
  Receipt Date: 20120113
  Transmission Date: 20120608
  Serious: Yes (Death, Other)
  Sender: FDA-Public Use
  Company Number: PHEH2008US05616

PATIENT
  Sex: Female
  Weight: 64.399 kg

DRUGS (39)
  1. ESTRADERM [Suspect]
     Indication: HORMONE REPLACEMENT THERAPY
     Dosage: UNK
     Dates: start: 19850101, end: 20030101
  2. NITROFURANTOIN [Concomitant]
  3. METHYLPREDNISOLON ^JENAPHARM^ [Concomitant]
  4. IBUPROFEN [Concomitant]
  5. METRONIDAZOL ^ALPHARMA^ [Concomitant]
  6. METROGEL [Concomitant]
  7. CEPHALEXIN [Concomitant]
  8. ROXICET [Concomitant]
  9. ALPRAZOLAM [Concomitant]
  10. DEXAMETHASONE TAB [Concomitant]
  11. ZITHROMAX [Concomitant]
  12. SERTRALINE HYDROCHLORIDE [Concomitant]
  13. MONOPRIL [Concomitant]
  14. ADIPEX [Concomitant]
  15. TAXOL [Suspect]
  16. ROBINUL FORTE [Concomitant]
  17. ENALAPRIL MALEATE [Concomitant]
  18. AMBIEN [Concomitant]
  19. BIAXIN [Concomitant]
  20. NAPROXEN SODIUM [Concomitant]
  21. TAMOXIFEN CITRATE [Concomitant]
  22. CEFADROXIL [Concomitant]
  23. CARBOPLATIN [Suspect]
  24. COMPAZINE [Suspect]
  25. PROMETHAZINE [Concomitant]
  26. CIPROFLOXACIN [Concomitant]
  27. CYCLOBENZAPRINE [Concomitant]
  28. PREMARIN [Concomitant]
  29. CLEOCIN HYDROCHLORIDE [Concomitant]
  30. DICYCLOMINE [Concomitant]
  31. TOPOTECAN [Suspect]
  32. TEMAZEPAM [Concomitant]
  33. CHEMOTHERAPEUTICS NOS [Concomitant]
  34. ESTRADIOL [Suspect]
     Indication: HORMONE REPLACEMENT THERAPY
     Dosage: UNK
     Dates: start: 19850101, end: 20030101
  35. MORPHINE [Concomitant]
  36. FLUCONAZOLE [Concomitant]
  37. MIRALAX [Concomitant]
  38. DOXIL [Suspect]
  39. NEULASTA [Suspect]
     Dosage: UNK

REACTIONS (64)
  - CHOLELITHIASIS [None]
  - NEUTROPENIA [None]
  - SCAR [None]
  - HIATUS HERNIA [None]
  - MUSCULAR WEAKNESS [None]
  - LEFT VENTRICULAR HYPERTROPHY [None]
  - PLEURAL EFFUSION [None]
  - PAIN [None]
  - ANXIETY [None]
  - FATIGUE [None]
  - POSTOPERATIVE WOUND INFECTION [None]
  - MALNUTRITION [None]
  - FUNGAL SEPSIS [None]
  - MALIGNANT NEOPLASM OF UTERINE ADNEXA [None]
  - SHORT-BOWEL SYNDROME [None]
  - HYPOKALAEMIA [None]
  - OVARIAN CANCER [None]
  - HYPERTENSION [None]
  - DIARRHOEA [None]
  - HYDRONEPHROSIS [None]
  - HYDROURETER [None]
  - IRON DEFICIENCY ANAEMIA [None]
  - JAUNDICE [None]
  - HYPERGLYCAEMIA [None]
  - PANCREATIC DUCT DILATATION [None]
  - CONSTIPATION [None]
  - ABDOMINAL PAIN LOWER [None]
  - DIZZINESS [None]
  - POST GASTRIC SURGERY SYNDROME [None]
  - WEIGHT DECREASED [None]
  - URINARY TRACT INFECTION [None]
  - CHILLS [None]
  - NAUSEA [None]
  - DEPRESSION [None]
  - LARYNGITIS [None]
  - ELECTROLYTE IMBALANCE [None]
  - OEDEMA [None]
  - ABDOMINAL PAIN [None]
  - FALL [None]
  - CONFUSIONAL STATE [None]
  - METASTASES TO KIDNEY [None]
  - ASTHMA [None]
  - ANAEMIA [None]
  - BONE PAIN [None]
  - HEPATIC STEATOSIS [None]
  - HEPATIC CYST [None]
  - DECREASED APPETITE [None]
  - CHEST PAIN [None]
  - IMMUNOSUPPRESSION [None]
  - POISONING [None]
  - DYSPNOEA [None]
  - METASTASES TO LIVER [None]
  - CHRONIC OBSTRUCTIVE PULMONARY DISEASE [None]
  - PANCYTOPENIA [None]
  - PYREXIA [None]
  - INTESTINAL OBSTRUCTION [None]
  - DEHYDRATION [None]
  - ARTHRALGIA [None]
  - INTESTINAL HAEMORRHAGE [None]
  - FISTULA [None]
  - MENTAL STATUS CHANGES [None]
  - ABSCESS [None]
  - SPINAL OSTEOARTHRITIS [None]
  - VOMITING [None]
